FAERS Safety Report 9899535 (Version 3)
Quarter: 2014Q1

REPORT INFORMATION
  Report Type: Spontaneous
  Country: NL (occurrence: NL)
  Receive Date: 20140214
  Receipt Date: 20140220
  Transmission Date: 20141002
  Serious: Yes (Life-Threatening, Hospitalization)
  Sender: FDA-Public Use
  Company Number: NL-B.I. PHARMACEUTICALS,INC./RIDGEFIELD-2014-BI-06063NL

PATIENT
  Age: 68 Year
  Sex: Female
  Weight: 104 kg

DRUGS (5)
  1. PRADAXA [Suspect]
     Indication: ATRIAL FIBRILLATION
     Dosage: 300 NR
     Route: 048
  2. PRAVASTATINE [Concomitant]
     Indication: DYSLIPIDAEMIA
     Dosage: 40 MG
     Route: 048
  3. CHLOORTALIDON [Concomitant]
     Indication: HYPERTENSION
     Dosage: 12.5 MG
     Route: 048
  4. VALSARTAN [Concomitant]
     Indication: HYPERTENSION
     Dosage: 160 MG
     Route: 048
  5. PARACETAMOL [Concomitant]

REACTIONS (2)
  - Subarachnoid haemorrhage [Not Recovered/Not Resolved]
  - Intracranial aneurysm [Not Recovered/Not Resolved]
